FAERS Safety Report 5594110-3 (Version None)
Quarter: 2008Q1

REPORT INFORMATION
  Report Type: 
  Country: None (occurrence: None)
  Receive Date: 20080116
  Receipt Date: 20080104
  Transmission Date: 20080703
  Serious: Yes (Other)
  Sender: FDA-Public Use
  Company Number: US-PFIZER INC-2008001643

PATIENT
  Sex: Female
  Weight: 65.8 kg

DRUGS (3)
  1. DILANTIN [Suspect]
     Indication: CONVULSION
     Route: 048
  2. ACTONEL [Concomitant]
  3. CALCIUM GLUCONATE [Concomitant]

REACTIONS (2)
  - HEADACHE [None]
  - HYPERTENSION [None]
